FAERS Safety Report 8984665 (Version 3)
Quarter: 2013Q3

REPORT INFORMATION
  Report Type: Spontaneous
  Country: US (occurrence: US)
  Receive Date: 20121226
  Receipt Date: 20130820
  Transmission Date: 20140515
  Serious: Yes (Hospitalization, Other)
  Sender: FDA-Public Use
  Company Number: US-ASTRAZENECA-2012SE94757

PATIENT
  Age: 59 Year
  Sex: Female
  Weight: 82.8 kg

DRUGS (40)
  1. NEXIUM [Suspect]
     Indication: COLITIS
     Route: 048
     Dates: start: 2006
  2. NEXIUM [Suspect]
     Indication: OESOPHAGEAL SPASM
     Route: 048
     Dates: start: 2006
  3. NEXIUM [Suspect]
     Indication: GASTROOESOPHAGEAL REFLUX DISEASE
     Route: 048
     Dates: start: 2006
  4. NEXIUM [Suspect]
     Indication: GASTROOESOPHAGEAL REFLUX DISEASE
     Route: 048
     Dates: start: 2006
  5. NEXIUM [Suspect]
     Indication: COLITIS
     Route: 048
     Dates: start: 200804, end: 201109
  6. NEXIUM [Suspect]
     Indication: OESOPHAGEAL SPASM
     Route: 048
     Dates: start: 200804, end: 201109
  7. NEXIUM [Suspect]
     Indication: GASTROOESOPHAGEAL REFLUX DISEASE
     Route: 048
     Dates: start: 200804, end: 201109
  8. NEXIUM [Suspect]
     Indication: GASTROOESOPHAGEAL REFLUX DISEASE
     Route: 048
     Dates: start: 200804, end: 201109
  9. NEXIUM [Suspect]
     Indication: COLITIS
     Route: 048
     Dates: start: 20080506
  10. NEXIUM [Suspect]
     Indication: OESOPHAGEAL SPASM
     Route: 048
     Dates: start: 20080506
  11. NEXIUM [Suspect]
     Indication: GASTROOESOPHAGEAL REFLUX DISEASE
     Route: 048
     Dates: start: 20080506
  12. NEXIUM [Suspect]
     Indication: GASTROOESOPHAGEAL REFLUX DISEASE
     Route: 048
     Dates: start: 20080506
  13. NEXIUM [Suspect]
     Indication: COLITIS
     Route: 048
     Dates: start: 20100216
  14. NEXIUM [Suspect]
     Indication: OESOPHAGEAL SPASM
     Route: 048
     Dates: start: 20100216
  15. NEXIUM [Suspect]
     Indication: GASTROOESOPHAGEAL REFLUX DISEASE
     Route: 048
     Dates: start: 20100216
  16. NEXIUM [Suspect]
     Indication: GASTROOESOPHAGEAL REFLUX DISEASE
     Route: 048
     Dates: start: 20100216
  17. CLONAZEPAM [Concomitant]
     Indication: AFFECTIVE DISORDER
     Route: 048
     Dates: start: 20080506
  18. NEURONTIN [Concomitant]
     Indication: PAIN
     Route: 048
     Dates: start: 20111126
  19. OXYCODONE HCL [Concomitant]
     Route: 048
     Dates: start: 20111126
  20. PRAVASTATIN [Concomitant]
     Indication: BLOOD CHOLESTEROL ABNORMAL
     Dates: start: 20110516
  21. PRAVASTATIN [Concomitant]
     Indication: BLOOD CHOLESTEROL ABNORMAL
     Dates: start: 20110214
  22. NITROSTAT [Concomitant]
     Dates: start: 20120109
  23. PLAVIX [Concomitant]
     Dates: start: 20070113
  24. BYSTOLIC [Concomitant]
     Indication: BLOOD PRESSURE ABNORMAL
     Dates: start: 20120131
  25. DEXILANT [Concomitant]
     Dates: start: 20120322
  26. DEXILANT [Concomitant]
     Dates: start: 20130513
  27. CHANTIX [Concomitant]
     Route: 048
     Dates: start: 20070403
  28. TRICOR [Concomitant]
     Route: 048
     Dates: start: 20070403
  29. ASPIRIN [Concomitant]
     Dates: start: 20070113
  30. PREVACID [Concomitant]
     Dates: start: 20071105
  31. FAMOTIDINE [Concomitant]
     Indication: GASTRIC PH DECREASED
     Dates: start: 20070803
  32. PREDNISONE [Concomitant]
     Route: 048
     Dates: start: 20100413
  33. PREDNISONE [Concomitant]
     Route: 048
     Dates: start: 20100423
  34. DICYCLOMINE [Concomitant]
     Dates: start: 20090706
  35. DIAZEPAM [Concomitant]
     Dates: start: 20091104
  36. ZANTAC [Concomitant]
     Indication: DYSPEPSIA
     Dates: start: 201109
  37. ROLAIDS [Concomitant]
     Dosage: EVERY ONCE IN WHILE
  38. FISH OIL [Concomitant]
     Indication: CARDIAC DISORDER
  39. CALTRATE [Concomitant]
     Indication: BLOOD CALCIUM
  40. DIOVAN [Concomitant]
     Indication: BLOOD PRESSURE ABNORMAL

REACTIONS (12)
  - Transient ischaemic attack [Unknown]
  - Pneumonia [Unknown]
  - Gallbladder disorder [Unknown]
  - Myocardial infarction [Unknown]
  - Carotid artery disease [Unknown]
  - Femur fracture [Unknown]
  - Fall [Unknown]
  - Osteoporosis [Unknown]
  - Type 2 diabetes mellitus [Unknown]
  - Hypertension [Unknown]
  - Osteoarthritis [Unknown]
  - Osteopenia [Unknown]
